FAERS Safety Report 24786827 (Version 1)
Quarter: 2024Q4

REPORT INFORMATION
  Report Type: Spontaneous
  Country: US (occurrence: US)
  Receive Date: 20241230
  Receipt Date: 20241230
  Transmission Date: 20250115
  Serious: Yes (Hospitalization, Other)
  Sender: Haleon PLC
  Company Number: US-HALEON-2218763

PATIENT
  Age: 46 Year
  Sex: Male

DRUGS (3)
  1. ACETAMINOPHEN [Suspect]
     Active Substance: ACETAMINOPHEN
     Indication: Oral pain
     Dosage: ACETAMINOPHEN 500 MG
     Route: 048
  2. CLINDAMYCIN [Concomitant]
     Active Substance: CLINDAMYCIN
     Indication: Sialoadenitis
     Route: 048
  3. CLINDAMYCIN [Concomitant]
     Active Substance: CLINDAMYCIN
     Indication: Salivary gland calculus

REACTIONS (13)
  - Decreased appetite [Recovering/Resolving]
  - Fatigue [Recovering/Resolving]
  - Nausea [Recovering/Resolving]
  - Vomiting [Recovering/Resolving]
  - Mandibular mass [Recovering/Resolving]
  - Abdominal tenderness [Recovering/Resolving]
  - Liver injury [Recovering/Resolving]
  - Overdose [Unknown]
  - Pain [Recovering/Resolving]
  - Swelling [Recovering/Resolving]
  - Toxicity to various agents [Recovering/Resolving]
  - Hepatic steatosis [Recovering/Resolving]
  - Leukocytosis [Recovering/Resolving]
